FAERS Safety Report 16735150 (Version 4)
Quarter: 2019Q3

REPORT INFORMATION
  Report Type: Report from Study
  Country: US (occurrence: US)
  Receive Date: 20190823
  Receipt Date: 20190912
  Transmission Date: 20191005
  Serious: Yes (Other)
  Sender: FDA-Public Use
  Company Number: US-TAIHO ONCOLOGY  INC-EU-2019-02682

PATIENT
  Age: 80 Year
  Sex: Female
  Weight: 68.1 kg

DRUGS (7)
  1. OMEPRAZOLE. [Concomitant]
     Active Substance: OMEPRAZOLE
     Dosage: NI
  2. LONSURF [Suspect]
     Active Substance: TIPIRACIL HYDROCHLORIDE\TRIFLURIDINE
     Indication: RECTOSIGMOID CANCER
  3. TYLENOL [Concomitant]
     Active Substance: ACETAMINOPHEN
     Dosage: NI
  4. CALCIUM [Concomitant]
     Active Substance: CALCIUM
     Dosage: NI
  5. GABAPENTIN. [Concomitant]
     Active Substance: GABAPENTIN
     Dosage: NI
  6. LONSURF [Suspect]
     Active Substance: TIPIRACIL HYDROCHLORIDE\TRIFLURIDINE
     Indication: COLON CANCER METASTATIC
     Dosage: CURRENT CYCLE: CYCLE 1.  DAYS 1-5 AND 8-12 OF EACH CYCLE.
     Route: 048
     Dates: start: 20190726
  7. ATENOLOL. [Concomitant]
     Active Substance: ATENOLOL
     Dosage: NI

REACTIONS (21)
  - Oropharyngeal pain [Not Recovered/Not Resolved]
  - Asthenia [Unknown]
  - Contusion [Not Recovered/Not Resolved]
  - Decreased appetite [Not Recovered/Not Resolved]
  - Sinusitis [Unknown]
  - Hunger [Unknown]
  - Haemorrhage [Not Recovered/Not Resolved]
  - Lacrimation increased [Unknown]
  - Inappropriate schedule of product administration [Unknown]
  - Abdominal discomfort [Unknown]
  - Pyrexia [Unknown]
  - Rhinorrhoea [Not Recovered/Not Resolved]
  - Dehydration [Unknown]
  - Cough [Not Recovered/Not Resolved]
  - Eyelid margin crusting [Not Recovered/Not Resolved]
  - White blood cell count decreased [Not Recovered/Not Resolved]
  - Platelet count decreased [Not Recovered/Not Resolved]
  - Malaise [Not Recovered/Not Resolved]
  - Urine abnormality [Not Recovered/Not Resolved]
  - Hypoaesthesia [Unknown]
  - Fatigue [Not Recovered/Not Resolved]

NARRATIVE: CASE EVENT DATE: 2019
